FAERS Safety Report 8252096-7 (Version None)
Quarter: 2012Q2

REPORT INFORMATION
  Report Type: 
  Country: None (occurrence: None)
  Receive Date: 20120402
  Receipt Date: 20110318
  Transmission Date: 20120825
  Serious: No
  Sender: FDA-Public Use
  Company Number: US-ABBOTT-11P-163-0804321-00

PATIENT
  Sex: Male
  Weight: 84.09 kg

DRUGS (1)
  1. TESTOSTERONE [Suspect]
     Indication: ERECTILE DYSFUNCTION
     Dosage: DAILY DOSE:  UNKNOWN, DURATION: 4.5 YEARS
     Route: 062
     Dates: start: 20060101

REACTIONS (2)
  - OSTEOPOROSIS [None]
  - OSTEOPENIA [None]
